FAERS Safety Report 19325763 (Version 1)
Quarter: 2021Q2

REPORT INFORMATION
  Report Type: Spontaneous
  Country: JP (occurrence: JP)
  Receive Date: 20210528
  Receipt Date: 20210528
  Transmission Date: 20210717
  Serious: Yes (Death, Hospitalization)
  Sender: FDA-Public Use
  Company Number: JP-AMERICAN REGENT INC-2021001365

PATIENT
  Age: 91 Year
  Sex: Female

DRUGS (1)
  1. FERINJECT [Suspect]
     Active Substance: FERRIC CARBOXYMALTOSE
     Indication: IRON DEFICIENCY ANAEMIA
     Dosage: 500 MG
     Dates: start: 20210326, end: 20210326

REACTIONS (3)
  - Gallbladder cancer [Fatal]
  - Infusion site extravasation [Not Recovered/Not Resolved]
  - Infusion site discolouration [Unknown]

NARRATIVE: CASE EVENT DATE: 20210326
